FAERS Safety Report 5151345-1 (Version None)
Quarter: 2006Q4

REPORT INFORMATION
  Report Type: 
  Country: None (occurrence: None)
  Receive Date: 20061115
  Receipt Date: 20061113
  Transmission Date: 20070319
  Serious: Yes (Death)
  Sender: FDA-Public Use
  Company Number: ZA-GLAXOSMITHKLINE-B0446409A

PATIENT
  Age: 6 Week
  Sex: Female
  Weight: 4 kg

DRUGS (8)
  1. ZIDOVUDINE [Suspect]
     Indication: HIV INFECTION
     Dosage: 65MG TWICE PER DAY
     Route: 048
     Dates: start: 20061103, end: 20061106
  2. LAMIVUDINE [Suspect]
     Indication: HIV INFECTION
     Dosage: 18MG TWICE PER DAY
     Route: 048
     Dates: start: 20061103, end: 20061106
  3. KALETRA [Suspect]
     Indication: HIV INFECTION
     Dosage: 1ML TWICE PER DAY
     Route: 048
     Dates: start: 20061103, end: 20061106
  4. PREVNAR [Suspect]
     Dates: start: 20061103
  5. COTRIM D.S. [Concomitant]
  6. DIPHTHERIA VACCINE [Concomitant]
  7. PERTUSSIS VACCINE [Concomitant]
  8. TETANUS VACCINE [Concomitant]

REACTIONS (1)
  - DEATH [None]
